FAERS Safety Report 20938229 (Version 1)
Quarter: 2022Q2

REPORT INFORMATION
  Report Type: Spontaneous
  Country: US (occurrence: None)
  Receive Date: 20220608
  Receipt Date: 20220608
  Transmission Date: 20220721
  Serious: Yes (Other)
  Sender: FDA-Public Use
  Company Number: None

PATIENT
  Sex: Female

DRUGS (13)
  1. PROCRIT [Suspect]
     Active Substance: ERYTHROPOIETIN
     Indication: Chronic kidney disease
     Dosage: OTHER STRENGTH : 10000/1 U/ML;?OTHER QUANTITY : 10000 UNIT/ML;?FREQUENCY : EVERY OTHER WEEK;?
     Route: 058
     Dates: start: 20200213
  2. ATORVASTATIN [Concomitant]
     Active Substance: ATORVASTATIN
  3. CALCITRIOL [Concomitant]
     Active Substance: CALCITRIOL
  4. DOXAZOSIN [Concomitant]
     Active Substance: DOXAZOSIN MESYLATE
  5. ELIQUIS [Concomitant]
     Active Substance: APIXABAN
  6. ERGOCALCIFER [Concomitant]
  7. FLECAINIDE [Concomitant]
     Active Substance: FLECAINIDE
  8. FUROSEMIDE [Concomitant]
     Active Substance: FUROSEMIDE
  9. GLIPIZIDE ER [Concomitant]
     Active Substance: GLIPIZIDE
  10. HYDROXYZINE HYDROCHLORIDE [Concomitant]
     Active Substance: HYDROXYZINE HYDROCHLORIDE
  11. LOSARTAN OT [Concomitant]
  12. METOPROLOL SUCCINATE [Concomitant]
     Active Substance: METOPROLOL SUCCINATE
  13. TRULICITY [Concomitant]
     Active Substance: DULAGLUTIDE

REACTIONS (1)
  - Meniscus injury [None]
